FAERS Safety Report 18051710 (Version 1)
Quarter: 2020Q3

REPORT INFORMATION
  Report Type: Spontaneous
  Country: ES (occurrence: ES)
  Receive Date: 20200722
  Receipt Date: 20200722
  Transmission Date: 20201103
  Serious: Yes (Other)
  Sender: FDA-Public Use
  Company Number: ES-TEVA-2020-ES-1802253

PATIENT
  Age: 62 Year
  Sex: Female
  Weight: 58.9 kg

DRUGS (2)
  1. SPASMOCTYL 40, 60 GRAGEAS [Concomitant]
     Indication: DIVERTICULITIS
     Dosage: BEFORE BREAKFAST, LUNCH AND DINNER, 40 MG
     Route: 048
     Dates: start: 20200622
  2. AMOXICILINA/ ACIDO CLAVULANICO TEVA 875 MG/125 MG POLVO PARA SUSPENSIO [Suspect]
     Active Substance: AMOXICILLIN\CLAVULANIC ACID
     Indication: DIVERTICULITIS
     Dosage: 875 MG
     Route: 048
     Dates: start: 20200622, end: 20200627

REACTIONS (1)
  - Palatal oedema [Unknown]

NARRATIVE: CASE EVENT DATE: 20200625
